FAERS Safety Report 5647509-0 (Version None)
Quarter: 2008Q1

REPORT INFORMATION
  Report Type: 
  Country: None (occurrence: None)
  Receive Date: 20080303
  Receipt Date: 20080219
  Transmission Date: 20080703
  Serious: Yes (Hospitalization)
  Sender: FDA-Public Use
  Company Number: GB-ELI_LILLY_AND_COMPANY-GB200802004076

PATIENT
  Sex: Female

DRUGS (3)
  1. CYMBALTA [Suspect]
     Route: 064
  2. CONCERTA [Concomitant]
     Dosage: 18 MG, UNK
     Route: 064
  3. ORAMORPH SR [Concomitant]
     Route: 064

REACTIONS (2)
  - DRUG EXPOSURE DURING PREGNANCY [None]
  - PREMATURE BABY [None]
